FAERS Safety Report 9255838 (Version 2)
Quarter: 2014Q1

REPORT INFORMATION
  Report Type: Report from Study
  Country: US (occurrence: US)
  Receive Date: 20130425
  Receipt Date: 20140116
  Transmission Date: 20141002
  Serious: Yes (Hospitalization)
  Sender: FDA-Public Use
  Company Number: US-ALEXION PHARMACEUTICALS INC.-A201300451

PATIENT
  Age: 46 Year
  Sex: Female
  Weight: 87.2 kg

DRUGS (6)
  1. SOLIRIS [Suspect]
     Indication: HAEMOLYTIC URAEMIC SYNDROME
     Dosage: 900 MG, SINGLE
     Route: 042
     Dates: start: 20130312, end: 20130312
  2. SOLIRIS [Suspect]
     Dosage: 1200 MG
     Route: 042
     Dates: start: 20130328
  3. ARANESP [Concomitant]
     Indication: ANAEMIA
     Dosage: 200 MCG, ONE DOSE
     Route: 058
  4. NEULASTA [Concomitant]
     Indication: FEBRILE NEUTROPENIA
     Dosage: 6 MG, SINGLE
     Route: 058
  5. ZOFRAN [Concomitant]
     Indication: NAUSEA
     Dosage: 16 MG, SINGLE
     Route: 042
  6. ZOFRAN [Concomitant]
     Indication: VOMITING

REACTIONS (3)
  - Febrile neutropenia [Unknown]
  - Pneumonia [Recovered/Resolved]
  - Clostridium difficile colitis [Unknown]
